FAERS Safety Report 5805639-4 (Version None)
Quarter: 2008Q3

REPORT INFORMATION
  Report Type: 
  Country: None (occurrence: None)
  Receive Date: 20080710
  Receipt Date: 20080501
  Transmission Date: 20090109
  Serious: No
  Sender: FDA-Public Use
  Company Number: A0717358A

PATIENT
  Age: 71 Year
  Sex: Female
  Weight: 57.3 kg

DRUGS (2)
  1. TYKERB [Suspect]
     Dosage: 1000MG PER DAY
     Route: 048
     Dates: start: 20070802, end: 20080403
  2. XELODA [Concomitant]
     Dates: start: 20070802

REACTIONS (6)
  - ERYTHEMA [None]
  - NAIL DISORDER [None]
  - OEDEMA PERIPHERAL [None]
  - ONYCHOMADESIS [None]
  - PAIN IN EXTREMITY [None]
  - PALMAR ERYTHEMA [None]
